FAERS Safety Report 4313876-3 (Version None)
Quarter: 2004Q1

REPORT INFORMATION
  Report Type: 
  Country: None (occurrence: None)
  Receive Date: 20040302
  Receipt Date: 20040120
  Transmission Date: 20041129
  Serious: Yes (Disabling)
  Sender: FDA-Public Use
  Company Number: WAES0401USA01478

PATIENT
  Age: 22 Month
  Sex: Male

DRUGS (2)
  1. SINGULAIR [Suspect]
     Indication: ASTHMA
     Dosage: 4 MG, DAILY, PO
     Route: 048
     Dates: start: 20031220
  2. ALBUTEROL [Concomitant]

REACTIONS (1)
  - EAR INFECTION [None]
